FAERS Safety Report 10335930 (Version 3)
Quarter: 2015Q1

REPORT INFORMATION
  Report Type: Spontaneous
  Country: US (occurrence: US)
  Receive Date: 20140723
  Receipt Date: 20150119
  Transmission Date: 20150720
  Serious: No
  Sender: FDA-Public Use
  Company Number: US-UNITED THERAPEUTICS-UTC-048513

PATIENT
  Sex: Female
  Weight: 100 kg

DRUGS (3)
  1. REMODULIN [Suspect]
     Active Substance: TREPROSTINIL
     Indication: COR PULMONALE CHRONIC
     Dosage: 0.014 ?G/KG/MIN, CONTINUING
     Route: 058
     Dates: start: 20140328
  2. TYVASO [Suspect]
     Active Substance: TREPROSTINIL
     Indication: COR PULMONALE CHRONIC
     Dosage: 18-54 MICROGRAMS, QID
     Dates: start: 20140414
  3. REVATIO [Concomitant]
     Active Substance: SILDENAFIL CITRATE

REACTIONS (3)
  - Chest pain [Unknown]
  - Epistaxis [Unknown]
  - Insomnia [Unknown]

NARRATIVE: CASE EVENT DATE: 2014
